FAERS Safety Report 18860985 (Version 1)
Quarter: 2021Q1

REPORT INFORMATION
  Report Type: Spontaneous
  Country: US (occurrence: US)
  Receive Date: 20210208
  Receipt Date: 20210208
  Transmission Date: 20210420
  Serious: No
  Sender: FDA-Public Use
  Company Number: US-PFIZER INC-2019339821

PATIENT
  Age: 80 Year
  Sex: Female

DRUGS (1)
  1. LYRICA [Suspect]
     Active Substance: PREGABALIN
     Dosage: 50 MG, 1X/DAY (1 CAP (S) PO(PER ORAL) 1X DAILY HS(HOURS OF SLEEP))
     Route: 048

REACTIONS (2)
  - Dyspnoea [Unknown]
  - Dysphonia [Unknown]
